FAERS Safety Report 17806817 (Version 1)
Quarter: 2020Q2

REPORT INFORMATION
  Report Type: Spontaneous
  Country: MY (occurrence: MY)
  Receive Date: 20200520
  Receipt Date: 20200520
  Transmission Date: 20200714
  Serious: Yes (Other)
  Sender: FDA-Public Use
  Company Number: MY-TORRENT-00000233

PATIENT
  Age: 83 Year
  Sex: Female

DRUGS (1)
  1. MEMENTOR TABLETS 10 MG [Suspect]
     Active Substance: MEMANTINE HYDROCHLORIDE
     Indication: DEMENTIA ALZHEIMER^S TYPE
     Route: 048

REACTIONS (1)
  - Asthenia [Recovered/Resolved]
